FAERS Safety Report 6948572-7 (Version None)
Quarter: 2010Q3

REPORT INFORMATION
  Report Type: 
  Country: None (occurrence: None)
  Receive Date: 20100828
  Receipt Date: 20091118
  Transmission Date: 20110219
  Serious: No
  Sender: FDA-Public Use
  Company Number: US-ABBOTT-09P-163-0609297-00

PATIENT
  Sex: Male
  Weight: 101.24 kg

DRUGS (17)
  1. NIASPAN [Suspect]
     Indication: BLOOD TRIGLYCERIDES INCREASED
     Dates: start: 20080101
  2. NIASPAN [Suspect]
     Indication: HIGH DENSITY LIPOPROTEIN DECREASED
  3. LEVOTHYROXINE [Concomitant]
     Indication: PRODUCT USED FOR UNKNOWN INDICATION
  4. PLAVIX [Concomitant]
     Indication: PRODUCT USED FOR UNKNOWN INDICATION
  5. ASPIRIN [Concomitant]
     Indication: PRODUCT USED FOR UNKNOWN INDICATION
  6. CARVEDILOL [Concomitant]
     Indication: PRODUCT USED FOR UNKNOWN INDICATION
  7. CLONIDINE [Concomitant]
     Indication: PRODUCT USED FOR UNKNOWN INDICATION
  8. LOTREL [Concomitant]
     Indication: PRODUCT USED FOR UNKNOWN INDICATION
  9. JANUVIA [Concomitant]
     Indication: PRODUCT USED FOR UNKNOWN INDICATION
  10. PREVACID [Concomitant]
     Indication: PRODUCT USED FOR UNKNOWN INDICATION
  11. CRESTOR [Concomitant]
     Indication: PRODUCT USED FOR UNKNOWN INDICATION
  12. TRICOR [Concomitant]
     Indication: PRODUCT USED FOR UNKNOWN INDICATION
  13. EYE DROPS [Concomitant]
     Indication: PRODUCT USED FOR UNKNOWN INDICATION
  14. METROGEL [Concomitant]
     Indication: PRODUCT USED FOR UNKNOWN INDICATION
  15. LOVAZA [Concomitant]
     Indication: PRODUCT USED FOR UNKNOWN INDICATION
  16. RHINOCORT [Concomitant]
     Indication: PRODUCT USED FOR UNKNOWN INDICATION
  17. INSPRA [Concomitant]
     Indication: PRODUCT USED FOR UNKNOWN INDICATION

REACTIONS (2)
  - FLUSHING [None]
  - SKIN BURNING SENSATION [None]
